FAERS Safety Report 4534631-5 (Version None)
Quarter: 2004Q4

REPORT INFORMATION
  Report Type: 
  Country: None (occurrence: None)
  Receive Date: 20041222
  Receipt Date: 20041210
  Transmission Date: 20050328
  Serious: Yes (Hospitalization)
  Sender: FDA-Public Use
  Company Number: DE-JNJFOC-20041101667

PATIENT
  Age: 30 Year
  Sex: Male

DRUGS (1)
  1. INFLIXIMAB [Suspect]
     Indication: ANKYLOSING SPONDYLITIS
     Route: 042

REACTIONS (3)
  - CUTANEOUS LEISHMANIASIS [None]
  - ENTEROCOCCAL INFECTION [None]
  - STAPHYLOCOCCAL INFECTION [None]
